FAERS Safety Report 9299167 (Version 7)
Quarter: 2015Q1

REPORT INFORMATION
  Report Type: Spontaneous
  Country: US (occurrence: US)
  Receive Date: 20130520
  Receipt Date: 20150316
  Transmission Date: 20150721
  Serious: Yes (Disabling, Other)
  Sender: FDA-Public Use
  Company Number: US-009507513-1305USA010613

PATIENT
  Sex: Male
  Weight: 81.18 kg

DRUGS (2)
  1. PROPECIA [Suspect]
     Active Substance: FINASTERIDE
     Indication: ALOPECIA
     Dosage: 1 MG, QD
     Route: 048
     Dates: start: 19980101
  2. FINASTERIDE. [Suspect]
     Active Substance: FINASTERIDE
     Indication: HAIR TRANSPLANT
     Dosage: 1 MG, UNK
     Route: 048

REACTIONS (39)
  - Basal cell carcinoma [Not Recovered/Not Resolved]
  - Flushing [Unknown]
  - Prostatitis [Unknown]
  - Depression [Not Recovered/Not Resolved]
  - Bone marrow transplant [Unknown]
  - Nephrolithiasis [Unknown]
  - Testicular failure [Not Recovered/Not Resolved]
  - Arthroscopy [Unknown]
  - Social problem [Unknown]
  - Hair transplant [Unknown]
  - Neuropathy peripheral [Recovering/Resolving]
  - Cardiac disorder [Unknown]
  - Wrist surgery [Unknown]
  - Arthropathy [Unknown]
  - Actinic keratosis [Unknown]
  - Hepatic cancer stage IV [Unknown]
  - Brain injury [Not Recovered/Not Resolved]
  - Eye disorder [Unknown]
  - Generalised anxiety disorder [Not Recovered/Not Resolved]
  - Injury [Unknown]
  - Gout [Unknown]
  - Testicular pain [Recovered/Resolved]
  - Agitation [Unknown]
  - Leukaemia [Unknown]
  - Diffuse large B-cell lymphoma [Recovered/Resolved]
  - Pain [Not Recovered/Not Resolved]
  - Peyronie^s disease [Not Recovered/Not Resolved]
  - Hormone level abnormal [Not Recovered/Not Resolved]
  - Hair transplant [Unknown]
  - Erectile dysfunction [Not Recovered/Not Resolved]
  - Confusional state [Unknown]
  - Nephropathy [Unknown]
  - Genital disorder male [Not Recovered/Not Resolved]
  - Pneumonitis [Recovering/Resolving]
  - Suicidal ideation [Unknown]
  - Hypertension [Unknown]
  - Pain [Not Recovered/Not Resolved]
  - Loss of libido [Not Recovered/Not Resolved]
  - Sexual dysfunction [Not Recovered/Not Resolved]

NARRATIVE: CASE EVENT DATE: 1998
